FAERS Safety Report 9997140 (Version 2)
Quarter: 2014Q2

REPORT INFORMATION
  Report Type: Spontaneous
  Country: FR (occurrence: FR)
  Receive Date: 20140311
  Receipt Date: 20140513
  Transmission Date: 20141212
  Serious: Yes (Death, Other)
  Sender: FDA-Public Use
  Company Number: FR-VERTEX PHARMACEUTICALS INC-2014-001162

PATIENT
  Age: 55 Year
  Sex: Male
  Weight: 56 kg

DRUGS (11)
  1. INCIVO [Suspect]
     Indication: HEPATITIS C
     Route: 048
     Dates: start: 20140117
  2. REBETOL [Suspect]
     Indication: HEPATITIS C
     Dosage: 200 MG, QD
     Route: 048
     Dates: start: 20140117
  3. VIRAFERON PEG [Suspect]
     Indication: HEPATITIS C
     Dosage: 80 DF, QW
     Route: 058
     Dates: start: 20140117
  4. SKENAN [Concomitant]
     Indication: ABDOMINAL PAIN UPPER
     Dosage: 60 MG, UNK
     Route: 048
     Dates: start: 2001
  5. SEVREDOL [Concomitant]
     Indication: ABDOMINAL PAIN UPPER
     Dosage: 20 MG, UNK
     Route: 065
     Dates: start: 2001
  6. LANTUS [Concomitant]
     Indication: DIABETES MELLITUS
     Dosage: UNK
     Route: 065
  7. CREON [Concomitant]
     Indication: DIABETES MELLITUS
     Dosage: UNK
     Route: 065
  8. PLAVIX [Concomitant]
     Indication: DIABETES MELLITUS
     Dosage: UNK
     Route: 065
  9. TAHOR [Concomitant]
     Indication: DIABETES MELLITUS
     Dosage: UNK
     Route: 065
  10. ALDACTONE [Concomitant]
     Indication: DIABETES MELLITUS
     Dosage: UNK
     Route: 065
  11. PAROXETINE [Concomitant]
     Indication: DEPRESSION
     Dosage: UNK
     Route: 065

REACTIONS (4)
  - Death [Fatal]
  - Decreased appetite [Unknown]
  - Asthenia [Unknown]
  - Oral fungal infection [Unknown]
